FAERS Safety Report 12298500 (Version 1)
Quarter: 2016Q2

REPORT INFORMATION
  Report Type: Spontaneous
  Country: US (occurrence: US)
  Receive Date: 20160425
  Receipt Date: 20160425
  Transmission Date: 20160815
  Serious: Yes (Other)
  Sender: FDA-Public Use
  Company Number: US-BRISTOL-MYERS SQUIBB COMPANY-BMS-2016-029325

PATIENT
  Sex: Male

DRUGS (1)
  1. ELIQUIS [Suspect]
     Active Substance: APIXABAN
     Indication: PRODUCT USED FOR UNKNOWN INDICATION
     Dosage: UNK, BID
     Route: 065

REACTIONS (10)
  - Dizziness [Unknown]
  - Haemorrhage [Unknown]
  - Fall [Unknown]
  - Vision blurred [Recovered/Resolved]
  - Constipation [Unknown]
  - Hiccups [Unknown]
  - Head injury [Unknown]
  - Joint injury [Unknown]
  - Hypotension [Unknown]
  - Loss of consciousness [Unknown]
